FAERS Safety Report 12355959 (Version 4)
Quarter: 2016Q3

REPORT INFORMATION
  Report Type: Report from Study
  Country: US (occurrence: US)
  Receive Date: 20160511
  Receipt Date: 20160809
  Transmission Date: 20161109
  Serious: Yes (Hospitalization, Other)
  Sender: FDA-Public Use
  Company Number: US-ACTELION-A-US2016-135852

PATIENT
  Age: 70 Year
  Sex: Male

DRUGS (2)
  1. TRACLEER [Suspect]
     Active Substance: BOSENTAN
     Indication: PULMONARY ARTERIAL HYPERTENSION
     Dosage: 125 MG, BID
     Route: 048
     Dates: start: 20090720
  2. OXYGEN. [Concomitant]
     Active Substance: OXYGEN
     Dosage: 2 L, UNK

REACTIONS (12)
  - Multiple organ dysfunction syndrome [Unknown]
  - Facial paralysis [Unknown]
  - Drooling [Unknown]
  - Musculoskeletal disorder [Unknown]
  - Cerebrovascular accident [Unknown]
  - Wound drainage [Unknown]
  - Nervous system disorder [Unknown]
  - Dyspnoea [Unknown]
  - Respiratory arrest [Unknown]
  - Syncope [Unknown]
  - Fall [Unknown]
  - Oedema peripheral [Unknown]

NARRATIVE: CASE EVENT DATE: 201604
